FAERS Safety Report 13740874 (Version 1)
Quarter: 2017Q3

REPORT INFORMATION
  Report Type: Spontaneous
  Country: US (occurrence: US)
  Receive Date: 20170711
  Receipt Date: 20170711
  Transmission Date: 20171127
  Serious: No
  Sender: FDA-Public Use
  Company Number: US-PFIZER INC-2017300469

PATIENT
  Sex: Female

DRUGS (23)
  1. NEURONTIN [Suspect]
     Active Substance: GABAPENTIN
     Dosage: UNK
  2. CELEBREX [Suspect]
     Active Substance: CELECOXIB
     Dosage: UNK
  3. COGENTIN [Suspect]
     Active Substance: BENZTROPINE MESYLATE
     Dosage: UNK
  4. PAXIL [Suspect]
     Active Substance: PAROXETINE HYDROCHLORIDE
     Dosage: UNK
  5. VESICARE [Suspect]
     Active Substance: SOLIFENACIN SUCCINATE
     Dosage: UNK
  6. ALEVE [Suspect]
     Active Substance: NAPROXEN SODIUM
     Dosage: UNK
  7. DEMEROL [Suspect]
     Active Substance: MEPERIDINE HYDROCHLORIDE
     Dosage: UNK
  8. DOXYCYCLINE HYCLATE. [Suspect]
     Active Substance: DOXYCYCLINE HYCLATE
     Dosage: UNK
  9. AMBIEN [Suspect]
     Active Substance: ZOLPIDEM TARTRATE
     Dosage: UNK
  10. NYSTATIN. [Suspect]
     Active Substance: NYSTATIN
     Dosage: 5 ML, 4X/DAY [5 ML IN EACH SIDE OF MOUTH, SWISH AND SWALLOW FOUR TIMES DAILY]
     Route: 048
  11. MYRBETRIQ [Suspect]
     Active Substance: MIRABEGRON
     Dosage: UNK
  12. OXYCONTIN [Suspect]
     Active Substance: OXYCODONE HYDROCHLORIDE
     Dosage: UNK
  13. MELLARIL [Suspect]
     Active Substance: THIORIDAZINE HYDROCHLORIDE
     Dosage: UNK
  14. DARVOCET-N 100 [Suspect]
     Active Substance: ACETAMINOPHEN\PROPOXYPHENE NAPSYLATE
     Dosage: UNK
  15. DARVON-N [Suspect]
     Active Substance: PROPOXYPHENE NAPSYLATE
     Dosage: UNK
  16. GABAPENTIN. [Suspect]
     Active Substance: GABAPENTIN
     Dosage: UNK
  17. IBUPROFEN. [Suspect]
     Active Substance: IBUPROFEN
     Dosage: UNK
  18. COMPAZINE [Suspect]
     Active Substance: PROCHLORPERAZINE MALEATE
     Dosage: UNK
  19. LEVAQUIN [Suspect]
     Active Substance: LEVOFLOXACIN
     Dosage: UNK
  20. MACROBID [Suspect]
     Active Substance: NITROFURANTOIN\NITROFURANTOIN MONOHYDRATE
     Dosage: UNK
  21. ROBAXIN [Suspect]
     Active Substance: METHOCARBAMOL
     Dosage: UNK
  22. STELAZINE [Suspect]
     Active Substance: TRIFLUOPERAZINE HYDROCHLORIDE
     Dosage: UNK
  23. THORAZINE [Suspect]
     Active Substance: CHLORPROMAZINE
     Dosage: UNK

REACTIONS (1)
  - Drug hypersensitivity [Unknown]
